FAERS Safety Report 15530084 (Version 1)
Quarter: 2018Q4

REPORT INFORMATION
  Report Type: Spontaneous
  Country: PT (occurrence: PT)
  Receive Date: 20181018
  Receipt Date: 20181018
  Transmission Date: 20190205
  Serious: Yes (Death)
  Sender: FDA-Public Use
  Company Number: PT-PFIZER INC-2018419958

PATIENT
  Age: 52 Year
  Sex: Female
  Weight: 95 kg

DRUGS (10)
  1. LOPERAMIDE [Concomitant]
     Active Substance: LOPERAMIDE
  2. DOCETAXEL. [Suspect]
     Active Substance: DOCETAXEL
     Indication: BREAST CANCER METASTATIC
     Dosage: 200 MG, CYCLIC (21/21DAYS)
     Route: 042
     Dates: start: 20180905, end: 20180905
  3. IBUPROFEN. [Concomitant]
     Active Substance: IBUPROFEN
  4. METOCLOPRAMIDE. [Concomitant]
     Active Substance: METOCLOPRAMIDE
  5. DEXAMETHASONE. [Concomitant]
     Active Substance: DEXAMETHASONE
  6. PARACETAMOL [Concomitant]
     Active Substance: ACETAMINOPHEN
  7. PREDNISOLONE. [Concomitant]
     Active Substance: PREDNISOLONE
  8. ZOLEDRONIC ACID [Concomitant]
     Active Substance: ZOLEDRONIC ACID
  9. GRANISETRON [Concomitant]
     Active Substance: GRANISETRON
  10. CODEINE [Concomitant]
     Active Substance: CODEINE

REACTIONS (1)
  - Febrile neutropenia [Fatal]

NARRATIVE: CASE EVENT DATE: 20180912
